FAERS Safety Report 6558721-0 (Version None)
Quarter: 2010Q1

REPORT INFORMATION
  Report Type: 
  Country: None (occurrence: None)
  Receive Date: 20100129
  Receipt Date: 20100118
  Transmission Date: 20100710
  Serious: Yes (Death)
  Sender: FDA-Public Use
  Company Number: FR-PFIZER INC-2010006416

PATIENT
  Age: 62 Year
  Sex: Male

DRUGS (4)
  1. SOLU-MEDROL [Suspect]
     Indication: LUNG DISORDER
     Dosage: 80 MG, 1X/DAY
     Dates: start: 20090401, end: 20090406
  2. BRICANYL [Concomitant]
  3. ATROVENT [Concomitant]
  4. OXYGEN [Concomitant]
     Dosage: 1.5 L/MIN 24H/24H

REACTIONS (2)
  - AGITATION [None]
  - BRIEF PSYCHOTIC DISORDER WITH MARKED STRESSORS [None]
